FAERS Safety Report 8072660-8 (Version None)
Quarter: 2011Q4

REPORT INFORMATION
  Report Type: 
  Country: None (occurrence: None)
  Receive Date: 20111221
  Receipt Date: 20101224
  Transmission Date: 20120403
  Serious: Yes (Disabling)
  Sender: FDA-Public Use
  Company Number: PHHY2010US62591

PATIENT
  Age: 85 Year
  Sex: Female
  Weight: 44 kg

DRUGS (7)
  1. LEVOTHYROXINE SODIUM [Concomitant]
  2. ASPIRIN [Concomitant]
  3. CLONAZEPAM [Concomitant]
  4. HYDROCODONE WITH IBUPROFEN [Concomitant]
  5. CILOSTAZOL [Concomitant]
  6. EXJADE [Suspect]
     Indication: MYELODYSPLASTIC SYNDROME
     Dosage: 250 MG, TID, ORAL, 250 MG, BID, ORAL, 1 DF, BID, ORAL
     Route: 048
     Dates: start: 20100909, end: 20100917
  7. EXJADE [Suspect]
     Indication: MYELODYSPLASTIC SYNDROME
     Dosage: 250 MG, TID, ORAL, 250 MG, BID, ORAL, 1 DF, BID, ORAL
     Route: 048
     Dates: start: 20100901, end: 20101201

REACTIONS (1)
  - DIARRHOEA [None]
